FAERS Safety Report 6715129-2 (Version None)
Quarter: 2010Q2

REPORT INFORMATION
  Report Type: 
  Country: None (occurrence: None)
  Receive Date: 20100507
  Receipt Date: 20100423
  Transmission Date: 20101027
  Serious: Yes (Hospitalization)
  Sender: FDA-Public Use
  Company Number: DE-MYLANLABS-2010S1007323

PATIENT
  Age: 75 Year
  Sex: Female
  Weight: 65 kg

DRUGS (8)
  1. FENTANYL [Suspect]
     Indication: PAIN
     Route: 003
     Dates: start: 20070101, end: 20080719
  2. CLOBAZAM [Suspect]
     Indication: EPILEPSY
     Route: 048
     Dates: end: 20080907
  3. VALPROATE SODIUM [Suspect]
     Indication: EPILEPSY
     Route: 048
     Dates: start: 20080401
  4. OMEPRAZOLE [Concomitant]
     Indication: PROPHYLAXIS AGAINST GASTROINTESTINAL ULCER
     Route: 048
     Dates: start: 20040101
  5. FOSAMAX [Concomitant]
     Indication: OSTEOPOROSIS
     Dosage: IMMER MONTAGS
     Route: 048
     Dates: start: 20020101
  6. COLECALCIFEROL [Concomitant]
     Indication: OSTEOPOROSIS
     Dosage: 1DF=1000MG CALCIUM + 800IU VITAMIN D3
     Route: 048
     Dates: start: 20020101
  7. FUROSEMIDE [Concomitant]
     Indication: HYPERTENSION
     Route: 048
     Dates: start: 20020101
  8. BISOPROLOL [Concomitant]
     Indication: HYPERTENSION
     Route: 048
     Dates: start: 20000101

REACTIONS (3)
  - DRUG INTERACTION [None]
  - SOMNOLENCE [None]
  - TRANSAMINASES INCREASED [None]
